FAERS Safety Report 6329178-X (Version None)
Quarter: 2009Q3

REPORT INFORMATION
  Report Type: 
  Country: None (occurrence: None)
  Receive Date: 20090826
  Receipt Date: 20090821
  Transmission Date: 20100115
  Serious: Yes (Other)
  Sender: FDA-Public Use
  Company Number: CA-ROCHE-651999

PATIENT
  Age: 76 Year
  Sex: Female

DRUGS (11)
  1. NAPROXEN [Suspect]
     Indication: DRUG USE FOR UNKNOWN INDICATION
     Route: 065
  2. ISOPTIN SR [Concomitant]
  3. CALCITE D [Concomitant]
  4. FOSAMAX [Concomitant]
  5. TYLENOL (CAPLET) [Concomitant]
  6. ATACAND HCT [Concomitant]
  7. GLYCERYL TRINITRATE [Concomitant]
  8. NOVASEN [Concomitant]
  9. LIPITOR [Concomitant]
  10. NITROGLYCERIN [Concomitant]
  11. DIAMICRON [Concomitant]

REACTIONS (7)
  - ANGINA PECTORIS [None]
  - BACK PAIN [None]
  - CHEST DISCOMFORT [None]
  - DYSPEPSIA [None]
  - ELECTROCARDIOGRAM ST SEGMENT DEPRESSION [None]
  - HYPOTENSION [None]
  - MYOCARDIAL ISCHAEMIA [None]
